FAERS Safety Report 9283209 (Version 1)
Quarter: 2013Q2

REPORT INFORMATION
  Report Type: Spontaneous
  Country: US (occurrence: US)
  Receive Date: 20130510
  Receipt Date: 20130510
  Transmission Date: 20140414
  Serious: No
  Sender: FDA-Public Use
  Company Number: US-GLAXOSMITHKLINE-A0988504A

PATIENT
  Sex: Female

DRUGS (7)
  1. TYKERB [Suspect]
     Indication: PROPHYLAXIS
     Dosage: 250MG SEE DOSAGE TEXT
     Route: 048
  2. DIGOXIN [Concomitant]
     Route: 065
  3. WELLBUTRIN SR [Concomitant]
     Route: 065
  4. ALEVE [Concomitant]
     Route: 065
  5. CALCIUM 500 [Concomitant]
  6. MULTIVITAMIN [Concomitant]
  7. CO-ENZYME Q 10 [Concomitant]
     Route: 065

REACTIONS (2)
  - Pruritus [Unknown]
  - Rash pustular [Unknown]
